FAERS Safety Report 5938034-8 (Version None)
Quarter: 2008Q4

REPORT INFORMATION
  Report Type: 
  Country: None (occurrence: None)
  Receive Date: 20081031
  Receipt Date: 20081021
  Transmission Date: 20090506
  Serious: Yes (Disabling)
  Sender: FDA-Public Use
  Company Number: CH-PFIZER INC-2008088113

PATIENT
  Age: 88 Year
  Sex: Female

DRUGS (3)
  1. GABAPENTIN [Suspect]
     Indication: POLYNEUROPATHY
     Route: 048
     Dates: start: 20060101
  2. DEANXIT [Suspect]
     Indication: ANXIETY
     Route: 048
     Dates: start: 20060101, end: 20080501
  3. DEANXIT [Suspect]
     Indication: DEPRESSION

REACTIONS (2)
  - OFF LABEL USE [None]
  - TARDIVE DYSKINESIA [None]
